FAERS Safety Report 9227409 (Version 1)
Quarter: 2013Q2

REPORT INFORMATION
  Report Type: Spontaneous
  Country: US (occurrence: US)
  Receive Date: 20130412
  Receipt Date: 20130412
  Transmission Date: 20140414
  Serious: Yes (Hospitalization)
  Sender: FDA-Public Use
  Company Number: US-UCBSA-082799

PATIENT
  Age: 8 Month
  Sex: Male

DRUGS (9)
  1. KEPPRA [Suspect]
  2. SABRIL [Suspect]
     Indication: INFANTILE SPASMS
     Dosage: VIA G-TUBE
     Dates: start: 201302, end: 2013
  3. SABRIL [Suspect]
     Indication: INFANTILE SPASMS
     Dosage: VIA G-TUBE
     Dates: start: 2013, end: 2013
  4. SABRIL [Suspect]
     Indication: INFANTILE SPASMS
     Dosage: VIA G-TUBE
     Dates: start: 2013
  5. CIPROFLOXACIN [Concomitant]
     Route: 048
  6. METOCLOPRAMIDE [Concomitant]
     Route: 048
  7. CLINDAMYCIN [Concomitant]
     Dosage: DOSE: 90 MG ONCE EVERY 8 HOURS
     Route: 048
  8. LEVOCARNITINE [Concomitant]
     Dosage: DOSE: 44 MG/KG
     Route: 048
  9. LANSOPRAZOLE [Concomitant]
     Route: 048

REACTIONS (4)
  - Grand mal convulsion [Unknown]
  - Pneumonia aspiration [Not Recovered/Not Resolved]
  - Convulsion [Not Recovered/Not Resolved]
  - Muscle spasms [Unknown]
